FAERS Safety Report 9462419 (Version 1)
Quarter: 2013Q3

REPORT INFORMATION
  Report Type: Spontaneous
  Country: US (occurrence: US)
  Receive Date: 20130816
  Receipt Date: 20130816
  Transmission Date: 20140515
  Serious: Yes (Other)
  Sender: FDA-Public Use
  Company Number: CHPA2013US012890

PATIENT
  Age: 73 Year
  Sex: Female

DRUGS (2)
  1. ASCRIPTIN BUFFERED MAX STRENGTH CAPLETS [Suspect]
     Indication: ARTHRITIS
     Dosage: 1 DF, UNK
     Route: 048
  2. ASCRIPTIN BUFFERED MAX STRENGTH CAPLETS [Suspect]
     Indication: PAIN

REACTIONS (2)
  - Neoplasm malignant [Unknown]
  - Underdose [Unknown]
